FAERS Safety Report 6260982-2 (Version None)
Quarter: 2009Q3

REPORT INFORMATION
  Report Type: 
  Country: None (occurrence: None)
  Receive Date: 20090707
  Receipt Date: 20090630
  Transmission Date: 20100115
  Serious: Yes (Other)
  Sender: FDA-Public Use
  Company Number: TPA2009A01333

PATIENT
  Age: 48 Year
  Sex: Female
  Weight: 86.1 kg

DRUGS (4)
  1. ACTOS [Suspect]
     Indication: TYPE 2 DIABETES MELLITUS
     Dosage: 30 MG, 1 IN 1 D, PER ORAL
     Route: 048
     Dates: start: 20090419, end: 20090525
  2. INSULIN (INSULIN) [Concomitant]
  3. LANTUS [Concomitant]
  4. LUVOX CR (FLUVOPXAMINE MALEATE) [Concomitant]

REACTIONS (2)
  - SELF-INJURIOUS IDEATION [None]
  - SUICIDAL IDEATION [None]
